FAERS Safety Report 5399942-2 (Version None)
Quarter: 2007Q3

REPORT INFORMATION
  Report Type: 
  Country: None (occurrence: None)
  Receive Date: 20070730
  Receipt Date: 20070720
  Transmission Date: 20080115
  Serious: Yes (Hospitalization)
  Sender: FDA-Public Use
  Company Number: JP-JNJFOC-20070701492

PATIENT
  Age: 77 Year
  Sex: Male

DRUGS (1)
  1. ITRACONAZOLE [Suspect]
     Indication: FUNGAL INFECTION
     Route: 048

REACTIONS (4)
  - DRUG ERUPTION [None]
  - HYPERTHERMIA [None]
  - PYREXIA [None]
  - RASH GENERALISED [None]
